FAERS Safety Report 8806186 (Version 1)
Quarter: 2012Q4

REPORT INFORMATION
  Report Type: 
  Country: CA (occurrence: CA)
  Receive Date: 20120925
  Receipt Date: 20120925
  Transmission Date: 20130627
  Serious: Yes (Other)
  Sender: FDA-Public Use
  Company Number: PHHY2012CA011412

PATIENT
  Age: 56 Year
  Sex: Male

DRUGS (1)
  1. SANDOSTATIN LAR [Suspect]
     Indication: PANCREATIC CARCINOMA
     Dosage: 30 mg, every 4 weeks
     Route: 030
     Dates: start: 20110921

REACTIONS (5)
  - Orchitis [Unknown]
  - Malaise [Unknown]
  - Restlessness [Unknown]
  - Feeling abnormal [Unknown]
  - Abdominal pain upper [Unknown]
